FAERS Safety Report 7142126-8 (Version None)
Quarter: 2010Q4

REPORT INFORMATION
  Report Type: 
  Country: None (occurrence: None)
  Receive Date: 20101207
  Receipt Date: 20101124
  Transmission Date: 20110411
  Serious: Yes (Hospitalization)
  Sender: FDA-Public Use
  Company Number: GXKR2010NL13322

PATIENT
  Age: 43 Year
  Sex: Female

DRUGS (2)
  1. INDOMETHACIN [Suspect]
     Dosage: 75 MG, BID
     Route: 065
  2. SERTRALINE (NGX) [Interacting]
     Indication: DEPRESSION
     Dosage: 100 MG, QD
     Route: 065

REACTIONS (22)
  - AMNESIA [None]
  - BABINSKI REFLEX TEST [None]
  - CHILLS [None]
  - CLONUS [None]
  - COMA [None]
  - DIARRHOEA [None]
  - DRUG INTERACTION [None]
  - ENDOTRACHEAL INTUBATION [None]
  - EXTUBATION [None]
  - FEELING ABNORMAL [None]
  - FLUSHING [None]
  - HEADACHE [None]
  - HYPERHIDROSIS [None]
  - HYPERREFLEXIA [None]
  - LOSS OF CONSCIOUSNESS [None]
  - METABOLIC ACIDOSIS [None]
  - MUSCLE RIGIDITY [None]
  - MYDRIASIS [None]
  - MYOCARDIAL INFARCTION [None]
  - SEROTONIN SYNDROME [None]
  - TREMOR [None]
  - VOMITING [None]
